FAERS Safety Report 9892387 (Version 2)
Quarter: 2014Q1

REPORT INFORMATION
  Report Type: Spontaneous
  Country: DE (occurrence: DE)
  Receive Date: 20140212
  Receipt Date: 20140225
  Transmission Date: 20141002
  Serious: Yes (Life-Threatening, Hospitalization, Other)
  Sender: FDA-Public Use
  Company Number: DE-ACTELION-A-CH2014-94523

PATIENT
  Age: 3 Year
  Sex: Male
  Weight: 14 kg

DRUGS (7)
  1. TRACLEER [Suspect]
     Indication: PULMONARY ARTERIAL HYPERTENSION
     Dosage: 24 MG, TID
     Route: 048
     Dates: end: 20140123
  2. TRACLEER [Suspect]
     Dosage: 8 MG, TID
     Route: 048
     Dates: start: 20110913
  3. TRACLEER [Suspect]
     Dosage: 16 MG, TID
     Route: 048
     Dates: start: 20111223
  4. SILDENAFIL [Concomitant]
     Dosage: UNK
     Dates: start: 20110124
  5. L-THYROXIN [Concomitant]
     Dosage: UNK
     Dates: start: 20110304
  6. BUDIAIR [Concomitant]
     Dosage: UNK
     Dates: start: 20111223, end: 20140123
  7. SULTANOL [Concomitant]
     Dosage: UNK
     Dates: start: 20110624

REACTIONS (9)
  - Hepatoblastoma [Unknown]
  - Hepatosplenomegaly [Unknown]
  - Gastric dilatation [Unknown]
  - Abdominal pain [Unknown]
  - Constipation [Unknown]
  - Biopsy liver [Unknown]
  - Respiratory failure [Unknown]
  - Chemotherapy [Unknown]
  - Liver function test abnormal [Unknown]
